FAERS Safety Report 15721615 (Version 1)
Quarter: 2018Q4

REPORT INFORMATION
  Report Type: Spontaneous
  Country: DE (occurrence: DE)
  Receive Date: 20181214
  Receipt Date: 20181214
  Transmission Date: 20190205
  Serious: Yes (Death, Life-Threatening, Hospitalization)
  Sender: FDA-Public Use
  Company Number: DE-TEVA-2018-DE-986182

PATIENT
  Age: 61 Year
  Sex: Male

DRUGS (2)
  1. HEPARIN [Suspect]
     Active Substance: HEPARIN SODIUM
     Indication: THROMBOSIS PROPHYLAXIS
     Dosage: SURGERY WITH A TARGET ACTIVATED PARTIAL THROMBOPLASTIN TIME OF 60 TO 80 SECONDS; STARTED ON THE D...
     Route: 042
  2. HEPARIN [Suspect]
     Active Substance: HEPARIN SODIUM
     Dosage: AN INITIAL DOSE OF 30 IU/KG WITH A TARGET ACTIVATED CLOTTING TIME (ACT) OF OVER 400 SECONDS.
     Route: 042

REACTIONS (5)
  - Heparin-induced thrombocytopenia [Fatal]
  - Multiple organ dysfunction syndrome [Fatal]
  - Respiratory disorder [Unknown]
  - Thrombosis [Unknown]
  - Haemodynamic instability [Unknown]
